FAERS Safety Report 8391367-0 (Version None)
Quarter: 2012Q2

REPORT INFORMATION
  Report Type: 
  Country: None (occurrence: None)
  Receive Date: 20120529
  Receipt Date: 20120523
  Transmission Date: 20120825
  Serious: Yes (Other)
  Sender: FDA-Public Use
  Company Number: US-BAYER-2012-051629

PATIENT
  Sex: Female

DRUGS (6)
  1. OMEPRAZOLE [Concomitant]
  2. DROSPIRENONE AND ETHINYL ESTRADIOL [Suspect]
  3. ZIPRASIDONE HCL [Concomitant]
  4. YAZ [Suspect]
  5. FAMOTIDINE [Concomitant]
  6. LAMOTRGINE [Concomitant]

REACTIONS (1)
  - PULMONARY EMBOLISM [None]
